FAERS Safety Report 21589727 (Version 1)
Quarter: 2022Q4

REPORT INFORMATION
  Report Type: Report from Study
  Country: US (occurrence: US)
  Receive Date: 20221114
  Receipt Date: 20221114
  Transmission Date: 20230113
  Serious: Yes (Hospitalization)
  Sender: FDA-Public Use
  Company Number: US-ABBVIE-22K-163-4475911-00

PATIENT
  Age: 49 Year
  Sex: Female
  Weight: 149.23 kg

DRUGS (3)
  1. HUMIRA [Suspect]
     Active Substance: ADALIMUMAB
     Indication: Psoriasis
     Route: 058
     Dates: start: 20220510
  2. CEFTAROLINE [Concomitant]
     Active Substance: CEFTAROLINE
     Indication: Product used for unknown indication
     Dosage: P, IV
     Dates: start: 20220712, end: 20220716
  3. Dapto [Concomitant]
     Indication: Product used for unknown indication
     Dosage: P, IV

REACTIONS (1)
  - Cellulitis [Recovered/Resolved]

NARRATIVE: CASE EVENT DATE: 20220611
